FAERS Safety Report 16656836 (Version 1)
Quarter: 2019Q3

REPORT INFORMATION
  Report Type: Report from Study
  Country: None (occurrence: FI)
  Receive Date: 20190801
  Receipt Date: 20190801
  Transmission Date: 20191004
  Serious: Yes (Other)
  Sender: FDA-Public Use
  Company Number: FI-ABBVIE-19K-055-2871307-00

PATIENT
  Age: 87 Year
  Sex: Male

DRUGS (4)
  1. IMOVANE [Concomitant]
     Active Substance: ZOPICLONE
     Indication: PRODUCT USED FOR UNKNOWN INDICATION
  2. DUODOPA [Suspect]
     Active Substance: CARBIDOPA\LEVODOPA
     Indication: PARKINSON^S DISEASE
     Dosage: MD 8 ML; CD 2.3 ML; ED 1 ML; 16 H TREATMENT
     Route: 050
     Dates: start: 201808
  3. SIMVASTATIN. [Concomitant]
     Active Substance: SIMVASTATIN
     Indication: PRODUCT USED FOR UNKNOWN INDICATION
  4. DUODOPA [Suspect]
     Active Substance: CARBIDOPA\LEVODOPA
     Route: 050

REACTIONS (7)
  - Malaise [Recovered/Resolved]
  - Fatigue [Recovering/Resolving]
  - Hypotension [Not Recovered/Not Resolved]
  - Daydreaming [Not Recovered/Not Resolved]
  - Seizure [Recovered/Resolved]
  - Device alarm issue [Recovered/Resolved]
  - Blood pressure fluctuation [Not Recovered/Not Resolved]

NARRATIVE: CASE EVENT DATE: 20190726
